FAERS Safety Report 16945383 (Version 1)
Quarter: 2019Q4

REPORT INFORMATION
  Report Type: Spontaneous
  Country: US (occurrence: US)
  Receive Date: 20191021
  Receipt Date: 20191021
  Transmission Date: 20200122
  Serious: Yes (Hospitalization)
  Sender: FDA-Public Use
  Company Number: None

PATIENT
  Age: 47 Year
  Sex: Female
  Weight: 81 kg

DRUGS (5)
  1. BUSPIRONE 30MG [Concomitant]
     Dates: start: 20190121
  2. TRAZODONE 150MG [Concomitant]
     Dates: start: 20190121
  3. GABAPENTIN 300MG [Concomitant]
     Active Substance: GABAPENTIN
     Dates: start: 20181023
  4. AIMOVIG [Suspect]
     Active Substance: ERENUMAB-AOOE
     Indication: MIGRAINE PROPHYLAXIS
     Dosage: ?          OTHER FREQUENCY:ONCE PER MONTH;?
     Route: 058
     Dates: start: 20190731, end: 20191018
  5. SERTRALINE [Concomitant]
     Active Substance: SERTRALINE HYDROCHLORIDE
     Dates: start: 20190121

REACTIONS (2)
  - Dehydration [None]
  - Constipation [None]

NARRATIVE: CASE EVENT DATE: 20191010
